FAERS Safety Report 17824677 (Version 1)
Quarter: 2020Q2

REPORT INFORMATION
  Report Type: Spontaneous
  Country: CH (occurrence: CH)
  Receive Date: 20200526
  Receipt Date: 20200526
  Transmission Date: 20200714
  Serious: Yes (Other)
  Sender: FDA-Public Use
  Company Number: NVSC2020CH139356

PATIENT

DRUGS (1)
  1. SANDOSTATIN LAR DEPOT [Suspect]
     Active Substance: OCTREOTIDE ACETATE
     Indication: OVARIAN CANCER METASTATIC
     Dosage: UNK UKN
     Route: 065

REACTIONS (2)
  - Ileus [Unknown]
  - Product use in unapproved indication [Unknown]
